FAERS Safety Report 13650767 (Version 1)
Quarter: 2017Q2

REPORT INFORMATION
  Report Type: Spontaneous
  Country: US (occurrence: US)
  Receive Date: 20170614
  Receipt Date: 20170614
  Transmission Date: 20170830
  Serious: Yes (Other)
  Sender: FDA-Public Use
  Company Number: None

PATIENT
  Age: 58 Year
  Sex: Female
  Weight: 76.73 kg

DRUGS (6)
  1. AICD/PACEMAKER DEFIBULATOR [Concomitant]
  2. METROPROLOL ER SUCCINATE [Concomitant]
  3. SOLU-MEDROL [Suspect]
     Active Substance: METHYLPREDNISOLONE SODIUM SUCCINATE
  4. XARELTO [Concomitant]
     Active Substance: RIVAROXABAN
  5. POTASSIUM [Concomitant]
     Active Substance: POTASSIUM
  6. MAGNISIUM [Concomitant]

REACTIONS (2)
  - Pain in extremity [None]
  - Hypersensitivity [None]

NARRATIVE: CASE EVENT DATE: 20170508
